FAERS Safety Report 5951455-2 (Version None)
Quarter: 2008Q4

REPORT INFORMATION
  Report Type: 
  Country: None (occurrence: None)
  Receive Date: 20081022
  Receipt Date: 20080814
  Transmission Date: 20090506
  Serious: No
  Sender: FDA-Public Use
  Company Number: ALL1-2008-02139

PATIENT
  Age: 12 Year
  Sex: Male
  Weight: 54.4 kg

DRUGS (5)
  1. VYVANSE [Suspect]
     Indication: ATTENTION DEFICIT/HYPERACTIVITY DISORDER
     Dosage: 30 MG, 1X/DAY:QD, ORAL
     Route: 048
     Dates: start: 20080501, end: 20080101
  2. CARBATROL [Concomitant]
  3. SINGULAIR /01362601/ (MONTELUKAST) [Concomitant]
  4. ALBUTEROL /00139501/ (SALBUTAMOL) [Concomitant]
  5. MULTIVITAMIN [Concomitant]

REACTIONS (4)
  - DECREASED APPETITE [None]
  - DRUG EFFECT INCREASED [None]
  - INSOMNIA [None]
  - MOOD SWINGS [None]
